FAERS Safety Report 6443039-7 (Version None)
Quarter: 2009Q4

REPORT INFORMATION
  Report Type: 
  Country: None (occurrence: None)
  Receive Date: 20091117
  Receipt Date: 20091105
  Transmission Date: 20100525
  Serious: Yes (Hospitalization)
  Sender: FDA-Public Use
  Company Number: FR-AMGEN-US374057

PATIENT
  Age: 21 Year
  Sex: Female

DRUGS (1)
  1. ENBREL [Suspect]
     Indication: DRUG USE FOR UNKNOWN INDICATION
     Dosage: 25 MG STRENGTH; DOSE UNKNOWN
     Route: 058
     Dates: start: 20080107, end: 20081101

REACTIONS (2)
  - COLITIS ULCERATIVE [None]
  - GASTRITIS EROSIVE [None]
